FAERS Safety Report 7250972-5 (Version None)
Quarter: 2011Q1

REPORT INFORMATION
  Report Type: 
  Country: None (occurrence: None)
  Receive Date: 20110128
  Receipt Date: 20110124
  Transmission Date: 20110831
  Serious: Yes (Congenital Anomaly)
  Sender: FDA-Public Use
  Company Number: A0909902A

PATIENT
  Sex: Male

DRUGS (1)
  1. PAXIL CR [Suspect]
     Indication: DEPRESSION
     Route: 064

REACTIONS (3)
  - POLYDACTYLY [None]
  - HYDROCELE [None]
  - DRUG EXPOSURE DURING PREGNANCY [None]
